FAERS Safety Report 10173782 (Version 3)
Quarter: 2018Q1

REPORT INFORMATION
  Report Type: Report from Study
  Country: US (occurrence: US)
  Receive Date: 20140515
  Receipt Date: 20180314
  Transmission Date: 20180508
  Serious: Yes (Life-Threatening, Hospitalization, Other)
  Sender: FDA-Public Use
  Company Number: US-ELI_LILLY_AND_COMPANY-US201405003164

PATIENT
  Age: 64 Year
  Sex: Female

DRUGS (16)
  1. SILOSTAR [Concomitant]
     Active Substance: NEBIVOLOL
     Indication: PRODUCT USED FOR UNKNOWN INDICATION
  2. ISOSORBIDE. [Concomitant]
     Active Substance: ISOSORBIDE
     Indication: PRODUCT USED FOR UNKNOWN INDICATION
  3. HUMALOG [Suspect]
     Active Substance: INSULIN LISPRO
     Dosage: .5 DF, TID
     Route: 058
     Dates: start: 2008
  4. LEVOTHYROXINE. [Concomitant]
     Active Substance: LEVOTHYROXINE
     Indication: PRODUCT USED FOR UNKNOWN INDICATION
     Dosage: UNK
  5. NITROSPRAY [Concomitant]
     Active Substance: NITROGLYCERIN
     Indication: PRODUCT USED FOR UNKNOWN INDICATION
  6. OXYGEN. [Concomitant]
     Active Substance: OXYGEN
     Indication: PRODUCT USED FOR UNKNOWN INDICATION
  7. ASPIRIN                            /00002701/ [Concomitant]
     Active Substance: ASPIRIN
     Dosage: UNK, UNKNOWN
     Route: 065
  8. QUINIDINE [Concomitant]
     Active Substance: QUINIDINE
     Indication: PRODUCT USED FOR UNKNOWN INDICATION
  9. PRASUGREL HYDROCHLORIDE [Suspect]
     Active Substance: PRASUGREL HYDROCHLORIDE
     Dosage: 10 MG, QD
     Route: 048
  10. PRASUGREL HYDROCHLORIDE [Suspect]
     Active Substance: PRASUGREL HYDROCHLORIDE
     Dosage: 5 MG, DAILY
     Route: 048
  11. LANTUS [Concomitant]
     Active Substance: INSULIN GLARGINE
     Indication: PRODUCT USED FOR UNKNOWN INDICATION
  12. HUMALOG [Suspect]
     Active Substance: INSULIN LISPRO
     Indication: DIABETES MELLITUS
     Dosage: UNK UNK, TID
     Route: 058
     Dates: start: 2008
  13. BASAGLAR [Suspect]
     Active Substance: INSULIN GLARGINE
     Indication: DIABETES MELLITUS
     Dosage: 6 U, DAILY
     Route: 058
  14. LIVALO [Concomitant]
     Active Substance: PITAVASTATIN CALCIUM
     Indication: PRODUCT USED FOR UNKNOWN INDICATION
  15. PRASUGREL HYDROCHLORIDE [Suspect]
     Active Substance: PRASUGREL HYDROCHLORIDE
     Indication: STENT PLACEMENT
     Dosage: 10 MG, QD
     Route: 048
     Dates: start: 2010, end: 201403
  16. PRASUGREL HYDROCHLORIDE [Suspect]
     Active Substance: PRASUGREL HYDROCHLORIDE
     Dosage: 10 MG, QD
     Route: 048
     Dates: start: 201403

REACTIONS (38)
  - Weight decreased [Unknown]
  - Myalgia [Unknown]
  - Angina pectoris [Recovered/Resolved]
  - Swelling [Unknown]
  - Thrombosis [Unknown]
  - Myocardial infarction [Unknown]
  - Blood pressure increased [Unknown]
  - Epistaxis [Unknown]
  - Underdose [Unknown]
  - Cardiac failure congestive [Unknown]
  - Multiple organ dysfunction syndrome [Unknown]
  - Vomiting [Unknown]
  - Vomiting [Unknown]
  - Fear [Unknown]
  - Cerebrovascular accident [Unknown]
  - Gastrointestinal disorder [Recovered/Resolved]
  - Blood pressure increased [Recovered/Resolved]
  - Coronary artery disease [Unknown]
  - Stress [Unknown]
  - Coma [Unknown]
  - Gallbladder disorder [Unknown]
  - Pain [Unknown]
  - Coma [Unknown]
  - Gastric disorder [Unknown]
  - Sleep disorder [Recovered/Resolved]
  - Anaemia [Unknown]
  - Heart rate increased [Unknown]
  - Cardiovascular disorder [Unknown]
  - Contusion [Unknown]
  - Coma [Unknown]
  - Vomiting [Unknown]
  - Diarrhoea [Unknown]
  - Sinusitis [Unknown]
  - Myocardial infarction [Unknown]
  - Pulmonary oedema [Recovered/Resolved]
  - Asthenia [Unknown]
  - Blood glucose decreased [Unknown]
  - Blood glucose increased [Recovered/Resolved]

NARRATIVE: CASE EVENT DATE: 20140928
